FAERS Safety Report 11096804 (Version 1)
Quarter: 2015Q2

REPORT INFORMATION
  Report Type: Spontaneous
  Country: US (occurrence: US)
  Receive Date: 20150507
  Receipt Date: 20150507
  Transmission Date: 20150821
  Serious: Yes (Other)
  Sender: FDA-Public Use
  Company Number: US-PFIZER INC-2015155643

PATIENT
  Sex: Female

DRUGS (3)
  1. LYRICA [Suspect]
     Active Substance: PREGABALIN
     Dosage: 75 MG, UNK
  2. LYRICA [Suspect]
     Active Substance: PREGABALIN
     Dosage: 225 MG, UNK
  3. CEVIMELINE [Concomitant]
     Active Substance: CEVIMELINE
     Dosage: UNK

REACTIONS (2)
  - Laryngeal nerve dysfunction [Unknown]
  - Speech disorder [Unknown]
